FAERS Safety Report 5705404-2 (Version None)
Quarter: 2008Q2

REPORT INFORMATION
  Report Type: 
  Country: None (occurrence: None)
  Receive Date: 20080415
  Receipt Date: 20080402
  Transmission Date: 20081010
  Serious: Yes (Hospitalization)
  Sender: FDA-Public Use
  Company Number: US-BAYER-200818922NA

PATIENT
  Age: 36 Year
  Sex: Male

DRUGS (1)
  1. AVELOX [Suspect]
     Indication: SINUSITIS
     Dosage: TOTAL DAILY DOSE: 400 MG  UNIT DOSE: 400 MG
     Route: 048
     Dates: start: 20080201, end: 20080301

REACTIONS (6)
  - ASTHENIA [None]
  - BARTTER'S SYNDROME [None]
  - BLOOD POTASSIUM ABNORMAL [None]
  - BLOOD POTASSIUM DECREASED [None]
  - DISORIENTATION [None]
  - LIVER FUNCTION TEST ABNORMAL [None]
